FAERS Safety Report 4667582-6 (Version None)
Quarter: 2005Q2

REPORT INFORMATION
  Report Type: 
  Country: None (occurrence: None)
  Receive Date: 20050502
  Receipt Date: 20040323
  Transmission Date: 20051028
  Serious: Yes (Hospitalization)
  Sender: FDA-Public Use
  Company Number: 1570

PATIENT
  Age: 52 Year
  Sex: Female
  Weight: 72.0312 kg

DRUGS (12)
  1. ONTAK [Suspect]
     Indication: LYMPHADENOPATHY
     Dosage: 18 UG/KG/D QD IV
     Route: 042
     Dates: start: 20040123, end: 20040927
  2. ONTAK [Suspect]
     Indication: MYCOSIS FUNGOIDES STAGE III
     Dosage: 18 UG/KG/D QD IV
     Route: 042
     Dates: start: 20040123, end: 20040927
  3. ACETAMINOPHEN [Concomitant]
  4. BUPROPION [Concomitant]
  5. CALCIUM GLUCONATE [Concomitant]
  6. DIPHENHYDRAMINE HCL [Concomitant]
  7. DOLASETRON [Concomitant]
  8. ESTRADIOL [Concomitant]
  9. IBUPROFEN [Concomitant]
  10. PROCHLORPERAZINE [Concomitant]
  11. SERTRALINE HCL [Concomitant]
  12. UNSEPCIFIED MULTIVITAMIN [Concomitant]

REACTIONS (1)
  - HYPERSENSITIVITY [None]
